FAERS Safety Report 11518394 (Version 6)
Quarter: 2016Q1

REPORT INFORMATION
  Report Type: Report from Study
  Country: JP (occurrence: JP)
  Receive Date: 20150917
  Receipt Date: 20160309
  Transmission Date: 20160525
  Serious: Yes (Other)
  Sender: FDA-Public Use
  Company Number: JP-INCYTE CORPORATION-2015IN001832

PATIENT
  Age: 71 Year
  Sex: Male
  Weight: 46 kg

DRUGS (1)
  1. JAKAFI [Suspect]
     Active Substance: RUXOLITINIB
     Indication: PRIMARY MYELOFIBROSIS
     Dosage: 5 MG, BID
     Route: 048
     Dates: start: 20150105

REACTIONS (2)
  - Anaemia [Not Recovered/Not Resolved]
  - Nuclear magnetic resonance imaging brain abnormal [Not Recovered/Not Resolved]

NARRATIVE: CASE EVENT DATE: 20150803
